FAERS Safety Report 6888394-9 (Version None)
Quarter: 2010Q3

REPORT INFORMATION
  Report Type: 
  Country: None (occurrence: None)
  Receive Date: 20100730
  Receipt Date: 20100719
  Transmission Date: 20110219
  Serious: Yes (Other)
  Sender: FDA-Public Use
  Company Number: BR-GENENTECH-302146

PATIENT
  Sex: Female
  Weight: 60 kg

DRUGS (9)
  1. RITUXIMAB [Suspect]
     Indication: VASCULITIS
     Dosage: 500 MG, UNK
     Route: 042
  2. RITUXIMAB [Suspect]
     Dosage: 1000 MG, Q15D
     Route: 042
     Dates: start: 20080301, end: 20080301
  3. RITUXIMAB [Suspect]
     Dosage: 1000 MG/ML, UNK
     Route: 042
     Dates: start: 20091101, end: 20091201
  4. RITUXIMAB [Suspect]
     Dosage: 1000 MG, UNK
     Dates: start: 20070301, end: 20070401
  5. CLONAZEPAM [Suspect]
     Indication: ANXIETY
     Dosage: 2 MG, UNK
     Dates: start: 20090101
  6. AZATHIOPRINE [Concomitant]
     Indication: VASCULITIS
     Dosage: UNK
  7. VENLAFAXINE HYDROCHLORIDE [Concomitant]
     Indication: DEPRESSION
     Dosage: UNK
  8. DIOVAN [Concomitant]
     Indication: PRODUCT USED FOR UNKNOWN INDICATION
     Dosage: UNK
  9. PANTOPRAZOLE [Concomitant]
     Indication: PROPHYLAXIS
     Dosage: UNK

REACTIONS (10)
  - ASTHENIA [None]
  - DEPRESSION [None]
  - HEADACHE [None]
  - HYPERSENSITIVITY [None]
  - IMMUNODEFICIENCY [None]
  - NAUSEA [None]
  - PAIN [None]
  - PRURITUS [None]
  - SKIN BURNING SENSATION [None]
  - VIRAL INFECTION [None]
